FAERS Safety Report 6303839-0 (Version None)
Quarter: 2009Q3

REPORT INFORMATION
  Report Type: 
  Country: None (occurrence: None)
  Receive Date: 20090807
  Receipt Date: 20090807
  Transmission Date: 20100115
  Serious: Yes (Other)
  Sender: FDA-Public Use
  Company Number: None

PATIENT
  Age: 46 Year
  Sex: Female
  Weight: 100 kg

DRUGS (3)
  1. OSMOPREP [Suspect]
     Indication: COLONOSCOPY
     Dosage: 32 PILLS OVER 2 DAYS, ORAL
     Route: 048
     Dates: start: 20090709
  2. OSMOPREP [Suspect]
     Indication: COLONOSCOPY
     Dosage: 32 PILLS OVER 2 DAYS, ORAL
     Route: 048
     Dates: start: 20090710
  3. DIOCVAN HCT [Concomitant]

REACTIONS (2)
  - BLOOD CREATININE INCREASED [None]
  - DIZZINESS [None]
